FAERS Safety Report 14835738 (Version 1)
Quarter: 2018Q2

REPORT INFORMATION
  Report Type: Spontaneous
  Country: FR (occurrence: FR)
  Receive Date: 20180502
  Receipt Date: 20180502
  Transmission Date: 20180711
  Serious: Yes (Other)
  Sender: FDA-Public Use
  Company Number: FR-MERCK KGAA-2046946

PATIENT
  Age: 57 Year
  Sex: Male

DRUGS (1)
  1. NOVOTHYROX [Suspect]
     Active Substance: LEVOTHYROXINE SODIUM
     Indication: PRODUCT USED FOR UNKNOWN INDICATION

REACTIONS (19)
  - Mental impairment [None]
  - Dizziness [None]
  - Arthralgia [None]
  - Haemoglobin increased [None]
  - Depression [None]
  - Insomnia [None]
  - Fatigue [None]
  - Irritability [None]
  - Decreased activity [None]
  - Affective disorder [None]
  - Personal relationship issue [None]
  - Apathy [None]
  - Headache [None]
  - Muscle spasms [None]
  - General physical health deterioration [None]
  - Palpitations [None]
  - Myalgia [None]
  - Thyroxine free increased [None]
  - Blood glucose increased [None]

NARRATIVE: CASE EVENT DATE: 20170215
